FAERS Safety Report 4676878-3 (Version None)
Quarter: 2005Q2

REPORT INFORMATION
  Report Type: 
  Country: None (occurrence: None)
  Receive Date: 20050527
  Receipt Date: 20050513
  Transmission Date: 20051028
  Serious: Yes (Hospitalization, Other)
  Sender: FDA-Public Use
  Company Number: 2005075470

PATIENT
  Age: 31 Year
  Sex: Female
  Weight: 45.3597 kg

DRUGS (8)
  1. BEXTRA [Suspect]
     Indication: PAIN
     Dosage: (10 MG, AS NEEDED), ORAL
     Route: 048
     Dates: start: 20040701
  2. ALLEGRA-D [Concomitant]
  3. ADVAIR (FLUTICASONE PROPIONATE, SALMETEROL XINAFOATE) [Concomitant]
  4. ALBUTEROL [Concomitant]
  5. VITAMINS (VITAMINS) [Concomitant]
  6. CLEOCIN [Concomitant]
  7. DEMEROL (ETHIDINE HYDROCHLORIDE) [Concomitant]
  8. PROMETHAZINE (PROMATHAZINE) [Concomitant]

REACTIONS (8)
  - DRUG EXPOSURE DURING PREGNANCY [None]
  - GINGIVAL BLEEDING [None]
  - GINGIVAL SWELLING [None]
  - HAEMORRHAGE [None]
  - JAW OPERATION [None]
  - PREGNANCY [None]
  - TONGUE DISCOLOURATION [None]
  - UTERINE HAEMORRHAGE [None]
